FAERS Safety Report 21948581 (Version 1)
Quarter: 2023Q1

REPORT INFORMATION
  Report Type: Spontaneous
  Country: ZA (occurrence: ZA)
  Receive Date: 20230203
  Receipt Date: 20230203
  Transmission Date: 20230418
  Serious: Yes (Other)
  Sender: FDA-Public Use
  Company Number: ZA-002147023-NVSC2023ZA018576

PATIENT
  Sex: Male
  Weight: 112 kg

DRUGS (13)
  1. RAMIPRIL [Suspect]
     Active Substance: RAMIPRIL
     Indication: Cardiac failure
     Dosage: UNK
     Route: 048
  2. BISOPROLOL [Suspect]
     Active Substance: BISOPROLOL
     Indication: Cardiac failure
     Dosage: UNK
     Route: 048
  3. HYDROCHLOROTHIAZIDE [Suspect]
     Active Substance: HYDROCHLOROTHIAZIDE
     Indication: Hypertension
     Dosage: 25 MG, QD
     Route: 048
  4. HYDRALAZINE [Suspect]
     Active Substance: HYDRALAZINE HYDROCHLORIDE
     Indication: Hypertension
     Dosage: 25 MG, QD
     Route: 048
  5. DAPAGLIFLOZIN [Concomitant]
     Active Substance: DAPAGLIFLOZIN
     Indication: Product used for unknown indication
     Dosage: 10 MG, QD
     Route: 065
  6. RAMIPRIL [Concomitant]
     Active Substance: RAMIPRIL
     Indication: Product used for unknown indication
     Dosage: 2.5 MG, QD
     Route: 065
  7. SPIRACTIN [Concomitant]
     Indication: Product used for unknown indication
     Dosage: 25 MG, QD
     Route: 065
  8. IVABRADINE [Concomitant]
     Active Substance: IVABRADINE
     Indication: Product used for unknown indication
     Dosage: 5 MG, BID
     Route: 065
  9. THIAMINE [Concomitant]
     Active Substance: THIAMINE
     Indication: Product used for unknown indication
     Dosage: UNK
     Route: 065
  10. ALLOPURINOL [Concomitant]
     Active Substance: ALLOPURINOL
     Indication: Product used for unknown indication
     Dosage: 300 MG
     Route: 065
  11. PREDNISONE [Concomitant]
     Active Substance: PREDNISONE
     Indication: Product used for unknown indication
     Dosage: 60 MG
     Route: 065
  12. AMIODARONE HYDROCHLORIDE [Concomitant]
     Active Substance: AMIODARONE HYDROCHLORIDE
     Indication: Product used for unknown indication
     Dosage: UNK
     Route: 065
  13. FUROSEMIDE [Concomitant]
     Active Substance: FUROSEMIDE
     Indication: Product used for unknown indication
     Dosage: UNK, PRN
     Route: 065

REACTIONS (1)
  - Cardiac failure [Unknown]
